FAERS Safety Report 19206338 (Version 1)
Quarter: 2021Q2

REPORT INFORMATION
  Report Type: Spontaneous
  Country: US (occurrence: US)
  Receive Date: 20210503
  Receipt Date: 20210503
  Transmission Date: 20210717
  Serious: No
  Sender: FDA-Public Use
  Company Number: None

PATIENT
  Age: 66 Year
  Sex: Male
  Weight: 75.02 kg

DRUGS (13)
  1. CAPECITABINE. [Suspect]
     Active Substance: CAPECITABINE
     Indication: NEUROENDOCRINE TUMOUR
     Route: 048
     Dates: start: 20200514, end: 20210503
  2. VITAMIN D (CHOLECALCIFEROL) [Concomitant]
     Active Substance: CHOLECALCIFEROL
  3. GABAPENTIN. [Concomitant]
     Active Substance: GABAPENTIN
  4. LORAZEPAM. [Concomitant]
     Active Substance: LORAZEPAM
  5. NIFEDIPINE. [Concomitant]
     Active Substance: NIFEDIPINE
  6. LANTUS SOLOSTAR [Concomitant]
     Active Substance: INSULIN GLARGINE
  7. CREON [Concomitant]
     Active Substance: PANCRELIPASE AMYLASE\PANCRELIPASE LIPASE\PANCRELIPASE PROTEASE
  8. CRESTOR [Concomitant]
     Active Substance: ROSUVASTATIN CALCIUM
  9. FAMOTIDINE. [Concomitant]
     Active Substance: FAMOTIDINE
  10. OMEPRAZOLE. [Concomitant]
     Active Substance: OMEPRAZOLE
  11. TEMOZOLOMIDE. [Suspect]
     Active Substance: TEMOZOLOMIDE
     Route: 048
     Dates: start: 20210301, end: 20210503
  12. TAMSULOSIN HCL [Concomitant]
     Active Substance: TAMSULOSIN HYDROCHLORIDE
  13. ONDANSETRON HCL [Concomitant]
     Active Substance: ONDANSETRON HYDROCHLORIDE

REACTIONS (1)
  - Disease progression [None]
